FAERS Safety Report 12157234 (Version 1)
Quarter: 2016Q1

REPORT INFORMATION
  Report Type: Spontaneous
  Country: GB (occurrence: GB)
  Receive Date: 20160308
  Receipt Date: 20160308
  Transmission Date: 20160526
  Serious: Yes (Hospitalization)
  Sender: FDA-Public Use
  Company Number: GB-ROCHE-1710901

PATIENT
  Age: 75 Year
  Sex: Female

DRUGS (1)
  1. ROACTEMRA [Suspect]
     Active Substance: TOCILIZUMAB
     Indication: RHEUMATOID ARTHRITIS
     Route: 042
     Dates: start: 20150924, end: 20151215

REACTIONS (2)
  - Colitis [Recovering/Resolving]
  - Pelvic inflammatory disease [Recovering/Resolving]

NARRATIVE: CASE EVENT DATE: 20160101
